FAERS Safety Report 17878873 (Version 1)
Quarter: 2020Q2

REPORT INFORMATION
  Report Type: Spontaneous
  Country: US (occurrence: US)
  Receive Date: 20200610
  Receipt Date: 20200610
  Transmission Date: 20200714
  Serious: Yes (Other)
  Sender: FDA-Public Use
  Company Number: US-ROCHE-2614387

PATIENT
  Sex: Male
  Weight: 88.08 kg

DRUGS (10)
  1. ZOLOFT [Concomitant]
     Active Substance: SERTRALINE HYDROCHLORIDE
     Indication: DEPRESSION
     Route: 065
     Dates: start: 201912
  2. CCNU [Suspect]
     Active Substance: LOMUSTINE
     Indication: GLIOBLASTOMA
     Route: 065
  3. SINGULAIR [Concomitant]
     Active Substance: MONTELUKAST SODIUM
     Indication: RESPIRATORY SYMPTOM
     Route: 065
  4. ZOLOFT [Concomitant]
     Active Substance: SERTRALINE HYDROCHLORIDE
     Indication: ANXIETY
  5. VIMPAT [Concomitant]
     Active Substance: LACOSAMIDE
     Indication: SEIZURE
     Route: 065
     Dates: start: 2018
  6. PROCARBAZINE [Suspect]
     Active Substance: PROCARBAZINE
     Indication: GLIOBLASTOMA
     Dosage: DAYS 8 THROUGH 21 ON THE 6TH WEEK CYCLE OF CCNU
     Route: 065
  7. IRBESARTAN. [Concomitant]
     Active Substance: IRBESARTAN
     Indication: BLOOD PRESSURE MEASUREMENT
     Route: 065
  8. KEPPRA XR [Concomitant]
     Active Substance: LEVETIRACETAM
     Indication: SEIZURE
     Route: 065
     Dates: start: 2016
  9. AVASTIN [Suspect]
     Active Substance: BEVACIZUMAB
     Indication: GLIOBLASTOMA
     Route: 042
     Dates: start: 201802, end: 20200423
  10. ELIQUIS [Concomitant]
     Active Substance: APIXABAN
     Indication: RENAL INFARCT
     Route: 065
     Dates: start: 20200527

REACTIONS (6)
  - Diarrhoea [Unknown]
  - Renal infarct [Unknown]
  - Anxiety [Not Recovered/Not Resolved]
  - Abdominal pain [Unknown]
  - Depression [Not Recovered/Not Resolved]
  - Blood pressure measurement [Not Recovered/Not Resolved]
